FAERS Safety Report 17759603 (Version 4)
Quarter: 2021Q2

REPORT INFORMATION
  Report Type: Spontaneous
  Country: CA (occurrence: CA)
  Receive Date: 20200508
  Receipt Date: 20210416
  Transmission Date: 20210716
  Serious: Yes (Life-Threatening, Hospitalization, Disabling, Other)
  Sender: FDA-Public Use
  Company Number: CA-ASTRAZENECA-2020SE60058

PATIENT
  Sex: Male
  Weight: 40.8 kg

DRUGS (1)
  1. SEROQUEL [Suspect]
     Active Substance: QUETIAPINE FUMARATE
     Route: 048
     Dates: start: 2005

REACTIONS (30)
  - Liver injury [Unknown]
  - Priapism [Unknown]
  - Migraine [Unknown]
  - Renal injury [Unknown]
  - Neuroleptic malignant syndrome [Unknown]
  - Herpes zoster [Unknown]
  - Decreased appetite [Unknown]
  - Muscle atrophy [Unknown]
  - Dermatitis exfoliative generalised [Unknown]
  - Mental disability [Unknown]
  - Anxiety [Unknown]
  - Product prescribing error [Not Recovered/Not Resolved]
  - Myocardial infarction [Unknown]
  - Aggression [Unknown]
  - Amnesia [Unknown]
  - Seizure [Not Recovered/Not Resolved]
  - Dyskinesia [Unknown]
  - Tooth loss [Not Recovered/Not Resolved]
  - Weight decreased [Not Recovered/Not Resolved]
  - Pyrexia [Unknown]
  - Blindness [Unknown]
  - Bone density decreased [Unknown]
  - Prescribed overdose [Unknown]
  - Suicidal ideation [Unknown]
  - Constipation [Unknown]
  - Pancreatic injury [Unknown]
  - Haematemesis [Not Recovered/Not Resolved]
  - Loss of consciousness [Unknown]
  - Insomnia [Not Recovered/Not Resolved]
  - Off label use [Unknown]

NARRATIVE: CASE EVENT DATE: 2005
